FAERS Safety Report 26063115 (Version 1)
Quarter: 2025Q4

REPORT INFORMATION
  Report Type: Spontaneous
  Country: US (occurrence: US)
  Receive Date: 20251119
  Receipt Date: 20251119
  Transmission Date: 20260117
  Serious: No
  Sender: TORRENT PHARMA INC.
  Company Number: US-TORRENT-00014599

PATIENT
  Sex: Male

DRUGS (1)
  1. VENXXIVA [Suspect]
     Active Substance: TIOPRONIN
     Indication: Cystinuria
     Dosage: 1 TABLET MOUTH MORNING, 1 TABLET AT MID-DAY, 2 TABLETS IN EVENING
     Route: 048
     Dates: start: 20251013

REACTIONS (2)
  - Muscle spasms [Recovered/Resolved]
  - Sleep disorder [Recovered/Resolved]

NARRATIVE: CASE EVENT DATE: 20251106
